FAERS Safety Report 16001303 (Version 1)
Quarter: 2019Q1

REPORT INFORMATION
  Report Type: Spontaneous
  Country: US (occurrence: US)
  Receive Date: 20190224
  Receipt Date: 20190224
  Transmission Date: 20190418
  Serious: Yes (Other)
  Sender: FDA-Public Use
  Company Number: None

PATIENT
  Age: 33 Year
  Sex: Female
  Weight: 112.5 kg

DRUGS (6)
  1. CYMBALTA [Suspect]
     Active Substance: DULOXETINE HYDROCHLORIDE
     Indication: DEPRESSION
     Dosage: ?          QUANTITY:3 CAPSULE(S);?
     Route: 048
     Dates: start: 20050501, end: 20190221
  2. ZYRTEC [Concomitant]
     Active Substance: CETIRIZINE HYDROCHLORIDE
  3. MULTIVITAMIN [Concomitant]
     Active Substance: VITAMINS
  4. XOLAIR [Concomitant]
     Active Substance: OMALIZUMAB
  5. PEPCID [Concomitant]
     Active Substance: FAMOTIDINE
  6. PRENATAL [Concomitant]
     Active Substance: VITAMINS

REACTIONS (10)
  - Pain of skin [None]
  - Paraesthesia [None]
  - Nausea [None]
  - Chills [None]
  - Diarrhoea [None]
  - Nightmare [None]
  - Vertigo [None]
  - Withdrawal syndrome [None]
  - Dizziness [None]
  - Pain [None]

NARRATIVE: CASE EVENT DATE: 20190223
